FAERS Safety Report 9201671 (Version 1)
Quarter: 2013Q2

REPORT INFORMATION
  Report Type: Spontaneous
  Country: BR (occurrence: BR)
  Receive Date: 20130401
  Receipt Date: 20130401
  Transmission Date: 20140414
  Serious: Yes (Hospitalization, Other)
  Sender: FDA-Public Use
  Company Number: PHHY2013BR031384

PATIENT
  Age: 21 Year
  Sex: Female
  Weight: 65 kg

DRUGS (3)
  1. SANDIMMUN NEORAL [Suspect]
     Indication: APLASTIC ANAEMIA
     Dosage: 400 MG, Q12H
     Dates: end: 20130122
  2. THYMOGLOBULIN [Suspect]
     Indication: APLASTIC ANAEMIA
     Dosage: 5 MG/KG, UNK
     Dates: start: 20130116
  3. PREDNISONE [Concomitant]
     Indication: APLASTIC ANAEMIA
     Dosage: 60 MG, Q12H
     Route: 048

REACTIONS (3)
  - Hypotension [Recovered/Resolved]
  - Oxygen saturation decreased [Recovered/Resolved]
  - Grand mal convulsion [Recovered/Resolved]
